FAERS Safety Report 12491024 (Version 2)
Quarter: 2016Q2

REPORT INFORMATION
  Report Type: Spontaneous
  Country: AT (occurrence: AT)
  Receive Date: 20160623
  Receipt Date: 20160628
  Transmission Date: 20160815
  Serious: Yes (Other)
  Sender: FDA-Public Use
  Company Number: AT-009507513-1606AUT008676

PATIENT
  Age: 84 Year
  Sex: Male
  Weight: 89.4 kg

DRUGS (3)
  1. KEYTRUDA [Suspect]
     Active Substance: PEMBROLIZUMAB
     Dosage: 179 MG, UNK
     Route: 042
     Dates: start: 20160428, end: 20160428
  2. KEYTRUDA [Suspect]
     Active Substance: PEMBROLIZUMAB
     Dosage: 179 MG, UNK
     Route: 042
     Dates: start: 20160316, end: 20160316
  3. KEYTRUDA [Suspect]
     Active Substance: PEMBROLIZUMAB
     Dosage: 179 MG, UNK
     Route: 042
     Dates: start: 20160406, end: 20160406

REACTIONS (3)
  - Rectal haemorrhage [Recovered/Resolved]
  - Diarrhoea haemorrhagic [Recovered/Resolved]
  - Diarrhoea [Recovered/Resolved]

NARRATIVE: CASE EVENT DATE: 20160504
